FAERS Safety Report 19467495 (Version 1)
Quarter: 2021Q2

REPORT INFORMATION
  Report Type: Spontaneous
  Country: US (occurrence: US)
  Receive Date: 20210628
  Receipt Date: 20210628
  Transmission Date: 20210717
  Serious: Yes (Other)
  Sender: FDA-Public Use
  Company Number: None

PATIENT
  Age: 51 Year
  Sex: Male
  Weight: 74.25 kg

DRUGS (1)
  1. GALAXY TREATS MOON BABIES DELTA 8 THC GUMMIES 50 MG STARBERRY [Suspect]
     Active Substance: .DELTA.8-TETRAHYDROCANNABINOL\HERBALS
     Indication: SLEEP DISORDER
     Route: 060
     Dates: start: 20210621, end: 20210628

REACTIONS (8)
  - Screaming [None]
  - Vomiting [None]
  - Dyspnoea [None]
  - Gait disturbance [None]
  - Fall [None]
  - Seizure [None]
  - Muscle rigidity [None]
  - Somnolence [None]

NARRATIVE: CASE EVENT DATE: 20210627
